FAERS Safety Report 23060235 (Version 1)
Quarter: 2023Q4

REPORT INFORMATION
  Report Type: Spontaneous
  Country: US (occurrence: US)
  Receive Date: 20231012
  Receipt Date: 20231012
  Transmission Date: 20240110
  Serious: No
  Sender: FDA-Public Use
  Company Number: US-ABBVIE-5442377

PATIENT
  Sex: Female

DRUGS (1)
  1. VRAYLAR [Suspect]
     Active Substance: CARIPRAZINE
     Indication: Bipolar I disorder
     Dosage: FORM STRENGTH: 1.5 MILLIGRAM
     Route: 048
     Dates: start: 202308, end: 202310

REACTIONS (15)
  - Allergy to arthropod sting [Recovered/Resolved]
  - Headache [Unknown]
  - Neck pain [Recovering/Resolving]
  - Hallucination, visual [Recovering/Resolving]
  - Muscle tightness [Recovering/Resolving]
  - Pain of skin [Recovered/Resolved]
  - Migraine [Recovering/Resolving]
  - Hypoaesthesia [Recovering/Resolving]
  - Skin laceration [Recovered/Resolved]
  - Fatigue [Not Recovered/Not Resolved]
  - Abnormal dreams [Recovered/Resolved]
  - Pruritus [Recovered/Resolved]
  - Arthropod sting [Recovered/Resolved]
  - Allergic oedema [Recovered/Resolved]
  - Fear [Unknown]

NARRATIVE: CASE EVENT DATE: 20230101
